FAERS Safety Report 9631304 (Version 1)
Quarter: 2013Q4

REPORT INFORMATION
  Report Type: Spontaneous
  Country: GB (occurrence: None)
  Receive Date: 20131016
  Receipt Date: 20131016
  Transmission Date: 20140711
  Serious: Yes (Hospitalization)
  Sender: FDA-Public Use
  Company Number: FK201304581

PATIENT
  Age: 12 Year
  Sex: Female

DRUGS (5)
  1. METHOTREXATE (METHOTREXATE) (METHOTREXATE) [Suspect]
     Indication: PRODUCT USED FOR UNKNOWN INDICATION
  2. ANAKINRA [Suspect]
     Indication: PRODUCT USED FOR UNKNOWN INDICATION
  3. CERVARIX [Suspect]
     Indication: PROPHYLAXIS
     Dosage: 1 DOSAGE FORMS, 1 IN 1 D
     Dates: start: 201010, end: 201010
  4. PREDNISOLONE [Suspect]
     Indication: PRODUCT USED FOR UNKNOWN INDICATION
  5. TOCILIZUMAB [Suspect]
     Indication: PRODUCT USED FOR UNKNOWN INDICATION

REACTIONS (18)
  - Tonsillitis [None]
  - Joint swelling [None]
  - Juvenile idiopathic arthritis [None]
  - Immobile [None]
  - Hyperglycaemia [None]
  - Cough [None]
  - Dyspnoea [None]
  - Fatigue [None]
  - Arthralgia [None]
  - Infection [None]
  - Local swelling [None]
  - Pain [None]
  - Pruritus [None]
  - Rash [None]
  - Somnolence [None]
  - Pyrexia [None]
  - Fatigue [None]
  - Weight decreased [None]
